FAERS Safety Report 8915832 (Version 2)
Quarter: 2012Q4

REPORT INFORMATION
  Report Type: 
  Country: US (occurrence: US)
  Receive Date: 20121119
  Receipt Date: 20121128
  Transmission Date: 20130627
  Serious: Yes (Other)
  Sender: FDA-Public Use
  Company Number: US-PFIZER INC-2012288152

PATIENT
  Age: 9 Year
  Sex: Female

DRUGS (11)
  1. MORPHINE SULFATE [Suspect]
     Indication: PAIN WORSENED
     Dosage: 2 mg, every 2 hours
     Route: 042
  2. FENTANYL [Suspect]
     Indication: PAIN
     Dosage: 30 mcg/h (basal rate)
  3. HYDROMORPHONE HYDROCHLORIDE [Suspect]
     Indication: PAIN
     Dosage: 0.2 mg/hr, with bolus of 0.2 mg/hr every 2 hrs
     Route: 042
  4. METHOTREXATE [Concomitant]
     Indication: JOINT SWELLING
     Dosage: UNK
  5. METHOTREXATE [Concomitant]
     Indication: PAIN
  6. NAPROXEN [Concomitant]
     Indication: JOINT SWELLING
     Dosage: UNK
  7. NAPROXEN [Concomitant]
     Indication: PAIN
  8. ETANERCEPT [Concomitant]
     Indication: JOINT SWELLING
     Dosage: UNK
  9. ETANERCEPT [Concomitant]
     Indication: PAIN
  10. KETOROLAC [Concomitant]
     Dosage: 15 mg, every 6 hours
     Route: 042
  11. LORAZEPAM [Concomitant]
     Indication: AGITATION
     Dosage: 2 mg, every 4 hrs

REACTIONS (2)
  - Hyperaesthesia [Recovering/Resolving]
  - Allodynia [Recovering/Resolving]
